FAERS Safety Report 16404885 (Version 2)
Quarter: 2019Q2

REPORT INFORMATION
  Report Type: Spontaneous
  Country: US (occurrence: US)
  Receive Date: 20190607
  Receipt Date: 20190619
  Transmission Date: 20190711
  Serious: Yes (Other)
  Sender: FDA-Public Use
  Company Number: US-ASTRAZENECA-2018SF64687

PATIENT
  Age: 24390 Day
  Sex: Female
  Weight: 122.5 kg

DRUGS (36)
  1. NEXIUM [Suspect]
     Active Substance: ESOMEPRAZOLE MAGNESIUM
     Route: 048
  2. PRILOSEC [Suspect]
     Active Substance: OMEPRAZOLE MAGNESIUM
     Route: 048
  3. PROTONIX [Suspect]
     Active Substance: PANTOPRAZOLE SODIUM
     Route: 065
  4. CALCITRIOL. [Concomitant]
     Active Substance: CALCITRIOL
  5. MUPIROCIN. [Concomitant]
     Active Substance: MUPIROCIN
  6. CIPROFLOXACIN. [Concomitant]
     Active Substance: CIPROFLOXACIN
  7. DEXILANT [Suspect]
     Active Substance: DEXLANSOPRAZOLE
     Route: 065
  8. SODIUM BICARBONATE. [Concomitant]
     Active Substance: SODIUM BICARBONATE
  9. LIPITOR [Concomitant]
     Active Substance: ATORVASTATIN CALCIUM
  10. HYDRALAZINE [Concomitant]
     Active Substance: HYDRALAZINE HYDROCHLORIDE
  11. ATORVASTATIN [Concomitant]
     Active Substance: ATORVASTATIN
  12. SERTRALINE [Concomitant]
     Active Substance: SERTRALINE HYDROCHLORIDE
  13. NOVOLOG [Concomitant]
     Active Substance: INSULIN ASPART
  14. METRONIDAZOLE. [Concomitant]
     Active Substance: METRONIDAZOLE
  15. VANCOMYCIN [Concomitant]
     Active Substance: VANCOMYCIN
  16. VENTOLIN [Concomitant]
     Active Substance: ALBUTEROL SULFATE
  17. PRILOSEC OTC [Suspect]
     Active Substance: OMEPRAZOLE MAGNESIUM
     Route: 048
  18. PREVACID [Suspect]
     Active Substance: LANSOPRAZOLE
     Route: 065
  19. INSULIN [Concomitant]
     Active Substance: INSULIN NOS
  20. NYSTOP [Concomitant]
     Active Substance: NYSTATIN
  21. NEXIUM 24HR [Suspect]
     Active Substance: ESOMEPRAZOLE MAGNESIUM
     Route: 048
  22. ERGOCALCIFEROL. [Concomitant]
     Active Substance: ERGOCALCIFEROL
  23. HUMALOG [Concomitant]
     Active Substance: INSULIN LISPRO
  24. LASIX [Concomitant]
     Active Substance: FUROSEMIDE
  25. LOSARTAN. [Concomitant]
     Active Substance: LOSARTAN
  26. SERTRALINE [Concomitant]
     Active Substance: SERTRALINE HYDROCHLORIDE
  27. TRIAMCINOLONE [Concomitant]
     Active Substance: TRIAMCINOLONE
  28. PREVACID 24 HR [Suspect]
     Active Substance: LANSOPRAZOLE
     Route: 065
  29. LANTUS [Concomitant]
     Active Substance: INSULIN GLARGINE
  30. AMLODIPINE [Concomitant]
     Active Substance: AMLODIPINE BESYLATE
  31. ALLOPURINOL. [Concomitant]
     Active Substance: ALLOPURINOL
  32. FUROSEMIDE. [Concomitant]
     Active Substance: FUROSEMIDE
  33. ALLOPURINOL. [Concomitant]
     Active Substance: ALLOPURINOL
  34. BYSTOLIC [Concomitant]
     Active Substance: NEBIVOLOL HYDROCHLORIDE
  35. ONDANSETRON [Concomitant]
     Active Substance: ONDANSETRON
  36. WALGREENS [Concomitant]

REACTIONS (8)
  - End stage renal disease [Unknown]
  - Chronic kidney disease [Unknown]
  - Acute kidney injury [Unknown]
  - Nephrogenic anaemia [Unknown]
  - Renal failure [Unknown]
  - Tubulointerstitial nephritis [Unknown]
  - Dyspepsia [Unknown]
  - Renal disorder [Unknown]

NARRATIVE: CASE EVENT DATE: 20170210
